FAERS Safety Report 7528729-7 (Version None)
Quarter: 2011Q2

REPORT INFORMATION
  Report Type: 
  Country: None (occurrence: None)
  Receive Date: 20110607
  Receipt Date: 20110602
  Transmission Date: 20111010
  Serious: Yes (Hospitalization)
  Sender: FDA-Public Use
  Company Number: US-BRISTOL-MYERS SQUIBB COMPANY-15799844

PATIENT
  Age: 71 Year
  Sex: Male

DRUGS (3)
  1. IPILIMUMAB [Suspect]
     Indication: MALIGNANT MELANOMA
     Route: 042
     Dates: start: 20110330, end: 20110601
  2. PREDNISONE [Concomitant]
     Dates: start: 20110510
  3. OMEPRAZOLE [Concomitant]
     Dates: start: 20110518

REACTIONS (3)
  - COLITIS [None]
  - ABSCESS INTESTINAL [None]
  - MENTAL STATUS CHANGES [None]
